FAERS Safety Report 6264221-8 (Version None)
Quarter: 2009Q3

REPORT INFORMATION
  Report Type: 
  Country: None (occurrence: None)
  Receive Date: 20090710
  Receipt Date: 20090702
  Transmission Date: 20100115
  Serious: Yes (Hospitalization)
  Sender: FDA-Public Use
  Company Number: FR-CELGENEUS-056-20484-09070194

PATIENT
  Weight: 2.26 kg

DRUGS (1)
  1. INNOHEP [Suspect]
     Dosage: DOSE RECEIVED BY MOTHER
     Route: 058
     Dates: start: 20070101

REACTIONS (2)
  - DRUG EXPOSURE DURING PREGNANCY [None]
  - PREMATURE BABY [None]
